FAERS Safety Report 19015181 (Version 1)
Quarter: 2021Q1

REPORT INFORMATION
  Report Type: Spontaneous
  Country: IN (occurrence: IN)
  Receive Date: 20210317
  Receipt Date: 20210317
  Transmission Date: 20210420
  Serious: Yes (Other)
  Sender: FDA-Public Use
  Company Number: IN-BAUSCH-BL-2021-007603

PATIENT
  Age: 55 Year
  Sex: Male

DRUGS (4)
  1. DEXAMETHASONE. [Suspect]
     Active Substance: DEXAMETHASONE
     Indication: COVID-19
     Route: 042
  2. REMDESIVIR. [Suspect]
     Active Substance: REMDESIVIR
     Indication: COVID-19
     Dosage: ON DAY 1
     Route: 065
  3. REMDESIVIR. [Suspect]
     Active Substance: REMDESIVIR
     Indication: PRODUCT USE IN UNAPPROVED INDICATION
     Dosage: ON DAYS 2?5
     Route: 065
  4. DEXAMETHASONE. [Suspect]
     Active Substance: DEXAMETHASONE
     Indication: PRODUCT USE IN UNAPPROVED INDICATION

REACTIONS (6)
  - Condition aggravated [Unknown]
  - Pulmonary mucormycosis [Recovering/Resolving]
  - Drug effective for unapproved indication [Unknown]
  - Escherichia urinary tract infection [Unknown]
  - Product use in unapproved indication [Unknown]
  - Hyperglycaemia [Unknown]
